FAERS Safety Report 9357024 (Version 1)
Quarter: 2013Q2

REPORT INFORMATION
  Report Type: Spontaneous
  Country: DE (occurrence: DE)
  Receive Date: 20130620
  Receipt Date: 20130620
  Transmission Date: 20140414
  Serious: Yes (Other)
  Sender: FDA-Public Use
  Company Number: DE-RANBAXY-2013R1-70277

PATIENT
  Sex: Female
  Weight: 91 kg

DRUGS (4)
  1. FLUOXETINE [Suspect]
     Indication: DEPRESSION
     Dosage: 40 MG, BID
     Route: 048
     Dates: start: 20071203, end: 20080122
  2. METHYLPHENIDATE [Suspect]
     Indication: DEPRESSION
     Dosage: 20 MG, BID
     Route: 048
     Dates: start: 20071203, end: 20080122
  3. DIPIPERON [Suspect]
     Indication: PSYCHOTIC DISORDER
     Dosage: 40 MG/DAY
     Route: 048
     Dates: start: 20071203, end: 20080122
  4. FOLIO FORTE [Concomitant]
     Indication: PROPHYLAXIS OF NEURAL TUBE DEFECT
     Dosage: 0.8 MG/DAY
     Route: 048

REACTIONS (2)
  - Thrombocytopenia [Unknown]
  - Pre-eclampsia [Recovered/Resolved]
